FAERS Safety Report 4489556-0 (Version None)
Quarter: 2004Q4

REPORT INFORMATION
  Report Type: 
  Country: None (occurrence: None)
  Receive Date: 20041026
  Receipt Date: 20041011
  Transmission Date: 20050328
  Serious: Yes (Congenital Anomaly)
  Sender: FDA-Public Use
  Company Number: GBS041015740

PATIENT

DRUGS (3)
  1. HUMALOG [Suspect]
  2. LANTUS [Concomitant]
  3. SALBUTAMOL [Concomitant]

REACTIONS (3)
  - CLEFT PALATE [None]
  - CONGENITAL ORAL MALFORMATION [None]
  - DRUG EXPOSURE DURING PREGNANCY [None]
